FAERS Safety Report 25765603 (Version 2)
Quarter: 2025Q3

REPORT INFORMATION
  Report Type: Spontaneous
  Country: JP (occurrence: JP)
  Receive Date: 20250905
  Receipt Date: 20250918
  Transmission Date: 20251021
  Serious: Yes (Other)
  Sender: RANBAXY
  Company Number: JP-SUN PHARMACEUTICAL INDUSTRIES INC-2025R1-525804

PATIENT
  Age: 56 Year
  Sex: Male

DRUGS (4)
  1. METHOTREXATE [Suspect]
     Active Substance: METHOTREXATE
     Indication: Lymphoproliferative disorder
     Dosage: 17.5 MILLIGRAM, WEEKLY
     Route: 065
  2. METHOTREXATE [Suspect]
     Active Substance: METHOTREXATE
     Dosage: 12.5 MILLIGRAM, WEEKLY
     Route: 065
  3. Ursodeoxycholic acid orion [Concomitant]
     Indication: Liver injury
     Dosage: 600 MILLIGRAM, DAILY (DAY 1)
     Route: 048
  4. Ursodeoxycholic acid orion [Concomitant]
     Route: 065

REACTIONS (1)
  - Hepatitis E [Recovered/Resolved]
